FAERS Safety Report 9372632 (Version 2)
Quarter: 2013Q3

REPORT INFORMATION
  Report Type: Spontaneous
  Country: AU (occurrence: AU)
  Receive Date: 20130627
  Receipt Date: 20130708
  Transmission Date: 20140515
  Serious: Yes (Hospitalization)
  Sender: FDA-Public Use
  Company Number: AU-EISAI INC-E3810-06503-SPO-AU

PATIENT
  Age: 59 Year
  Sex: Female
  Weight: 41 kg

DRUGS (6)
  1. PARIET (RABEPRAZOLE) [Suspect]
     Indication: PRODUCT USED FOR UNKNOWN INDICATION
     Dosage: UNKNOWN
     Route: 065
  2. DUROGESIC [Suspect]
     Indication: PRODUCT USED FOR UNKNOWN INDICATION
     Dosage: UNKNOWN
     Route: 062
     Dates: end: 201306
  3. EPILIM [Concomitant]
     Dosage: UNKNOWN
     Route: 065
  4. CELAPRAM [Concomitant]
     Dosage: UNKNOWN
     Route: 065
  5. METRONIDAZOLE [Concomitant]
     Dosage: UNKNOWN
     Route: 065
  6. IRON [Concomitant]
     Indication: MINERAL SUPPLEMENTATION
     Dosage: UNKNOWN
     Route: 065

REACTIONS (10)
  - Gastrointestinal stoma complication [Recovered/Resolved]
  - Fall [Recovered/Resolved]
  - Blood creatine phosphokinase increased [Recovered/Resolved]
  - Inappropriate affect [Recovering/Resolving]
  - Inappropriate affect [Recovering/Resolving]
  - Crying [Recovering/Resolving]
  - Affect lability [Recovering/Resolving]
  - Delirium [Recovering/Resolving]
  - Blood sodium decreased [Recovered/Resolved]
  - Confusional state [Recovering/Resolving]
